FAERS Safety Report 5005028-9 (Version None)
Quarter: 2006Q2

REPORT INFORMATION
  Report Type: 
  Country: None (occurrence: None)
  Receive Date: 20060512
  Receipt Date: 20060502
  Transmission Date: 20061013
  Serious: Yes (Disabling)
  Sender: FDA-Public Use
  Company Number: 2006061060

PATIENT
  Age: 57 Year
  Sex: Male

DRUGS (6)
  1. XALATAN [Suspect]
     Indication: ILL-DEFINED DISORDER
     Dosage: (1 IN 1 D), OPHTHALMIC
     Route: 047
     Dates: start: 20010205
  2. LIPITOR [Concomitant]
  3. ATENOLOL [Concomitant]
  4. METFORMIN [Concomitant]
  5. AVANDIA [Concomitant]
  6. ASCAL (ACETYLSALICYLATE CALCIUM) [Concomitant]

REACTIONS (3)
  - EYE HAEMORRHAGE [None]
  - GROWTH OF EYELASHES [None]
  - VISUAL FIELD DEFECT [None]
